FAERS Safety Report 8365751-5 (Version None)
Quarter: 2012Q2

REPORT INFORMATION
  Report Type: 
  Country: None (occurrence: None)
  Receive Date: 20120516
  Receipt Date: 20120423
  Transmission Date: 20120825
  Serious: Yes (Hospitalization, Other)
  Sender: FDA-Public Use
  Company Number: PHHY2011KR105586

PATIENT
  Sex: Female
  Weight: 45 kg

DRUGS (1)
  1. EXJADE [Suspect]
     Indication: APLASTIC ANAEMIA
     Dosage: 1000 MG (15 MG/KG)
     Route: 048
     Dates: start: 20080915, end: 20081211

REACTIONS (8)
  - ABDOMINAL PAIN [None]
  - LIMB INJURY [None]
  - DIARRHOEA [None]
  - LOWER LIMB FRACTURE [None]
  - LIVER FUNCTION TEST ABNORMAL [None]
  - WEIGHT DECREASED [None]
  - DECREASED APPETITE [None]
  - FEMUR FRACTURE [None]
